FAERS Safety Report 7824882-6 (Version None)
Quarter: 2011Q4

REPORT INFORMATION
  Report Type: 
  Country: None (occurrence: None)
  Receive Date: 20111019
  Receipt Date: 20110311
  Transmission Date: 20120403
  Serious: No
  Sender: FDA-Public Use
  Company Number: US-BRISTOL-MYERS SQUIBB COMPANY-15552755

PATIENT
  Age: 34 Year
  Sex: Female

DRUGS (3)
  1. ATENOLOL [Concomitant]
  2. CYMBALTA [Concomitant]
  3. AVALIDE [Suspect]
     Dosage: 1 DF = 2 PILLS
     Dates: start: 20100101

REACTIONS (4)
  - DIZZINESS [None]
  - SWELLING [None]
  - PALPITATIONS [None]
  - DRUG INEFFECTIVE [None]
